FAERS Safety Report 7009197-0 (Version None)
Quarter: 2010Q3

REPORT INFORMATION
  Report Type: 
  Country: None (occurrence: None)
  Receive Date: 20100923
  Receipt Date: 20100915
  Transmission Date: 20110219
  Serious: Yes (Other)
  Sender: FDA-Public Use
  Company Number: US-ASTRAZENECA-2007UW09621

PATIENT
  Age: 52 Year
  Sex: Male
  Weight: 93 kg

DRUGS (25)
  1. SEROQUEL [Suspect]
     Indication: BIPOLAR DISORDER
     Dosage: 50-400 MG
     Route: 048
     Dates: start: 20030717, end: 20080816
  2. SEROQUEL [Suspect]
     Indication: SCHIZOPHRENIA
     Dosage: 50-400 MG
     Route: 048
     Dates: start: 20030717, end: 20080816
  3. SEROQUEL [Suspect]
     Indication: NERVOUSNESS
     Dosage: 50-400 MG
     Route: 048
     Dates: start: 20030717, end: 20080816
  4. SEROQUEL [Suspect]
     Route: 048
     Dates: start: 20030801
  5. SEROQUEL [Suspect]
     Route: 048
     Dates: start: 20030801
  6. SEROQUEL [Suspect]
     Route: 048
     Dates: start: 20030801
  7. SEROQUEL [Suspect]
     Dosage: 100MG TO 400MG
     Route: 048
     Dates: start: 20050422
  8. SEROQUEL [Suspect]
     Dosage: 100MG TO 400MG
     Route: 048
     Dates: start: 20050422
  9. SEROQUEL [Suspect]
     Dosage: 100MG TO 400MG
     Route: 048
     Dates: start: 20050422
  10. NORVASC [Concomitant]
     Dates: start: 20051121
  11. LORTAB [Concomitant]
     Dosage: 10/500 DAILY AS REQUIRED
     Dates: start: 20051121
  12. PROTONIX [Concomitant]
     Dates: start: 20051121
  13. SOMA [Concomitant]
     Dosage: 350MG THREE TIMES A DAY AS NEEDED
     Dates: start: 20051121
  14. XANAX [Concomitant]
     Dates: start: 20051121
  15. BUSPIRONE HCL [Concomitant]
     Route: 048
     Dates: start: 20050401
  16. DEPAKOTE [Concomitant]
     Route: 048
     Dates: start: 20050422
  17. ZOLOFT [Concomitant]
     Route: 048
     Dates: start: 20050422
  18. FERROUS SULFATE [Concomitant]
     Route: 048
     Dates: start: 20051213
  19. LIPITOR [Concomitant]
     Route: 048
     Dates: start: 20051213
  20. FELODIPINE [Concomitant]
     Dates: start: 20051213
  21. ISOSOR MON [Concomitant]
     Route: 048
     Dates: start: 20051213
  22. NITROSTAT [Concomitant]
     Dosage: 0.5 MG AS DIRECTED
     Dates: start: 20051213
  23. KLONOPIN [Concomitant]
     Indication: ANXIETY
     Dates: start: 20051129
  24. ABILIFY [Concomitant]
  25. HALDOL [Concomitant]

REACTIONS (6)
  - ARTHRALGIA [None]
  - BLOOD CHOLESTEROL INCREASED [None]
  - DIABETES MELLITUS [None]
  - DIABETIC NEUROPATHY [None]
  - PANCREATITIS [None]
  - TYPE 2 DIABETES MELLITUS [None]
